FAERS Safety Report 8040882-8 (Version None)
Quarter: 2012Q1

REPORT INFORMATION
  Report Type: 
  Country: None (occurrence: None)
  Receive Date: 20120112
  Receipt Date: 20120104
  Transmission Date: 20120608
  Serious: No
  Sender: FDA-Public Use
  Company Number: US-BIOGENIDEC-2010BI018953

PATIENT
  Age: 29 Year
  Sex: Female

DRUGS (1)
  1. TYSABRI [Suspect]
     Indication: MULTIPLE SCLEROSIS
     Route: 042
     Dates: start: 20100420

REACTIONS (4)
  - MULTIPLE SCLEROSIS [None]
  - NASOPHARYNGITIS [None]
  - VAGINAL INFECTION [None]
  - URINARY TRACT INFECTION [None]
